FAERS Safety Report 6772897-1 (Version None)
Quarter: 2010Q2

REPORT INFORMATION
  Report Type: 
  Country: None (occurrence: None)
  Receive Date: 20100520
  Receipt Date: 20090317
  Transmission Date: 20101027
  Serious: Yes (Disabling, Other)
  Sender: FDA-Public Use
  Company Number: 2009184972

PATIENT
  Age: 55 Year
  Sex: Female
  Weight: 63 kg

DRUGS (3)
  1. PROVERA [Suspect]
     Indication: HORMONE REPLACEMENT THERAPY
     Dates: start: 19980201, end: 19980601
  2. PREMPRO [Suspect]
     Indication: HORMONE REPLACEMENT THERAPY
     Dates: start: 19970801, end: 19980101
  3. ESTRATAB [Suspect]
     Indication: HORMONE REPLACEMENT THERAPY
     Dates: start: 19971201, end: 19980601

REACTIONS (1)
  - CEREBROVASCULAR ACCIDENT [None]
